FAERS Safety Report 17835158 (Version 2)
Quarter: 2020Q2

REPORT INFORMATION
  Report Type: Report from Study
  Country: US (occurrence: US)
  Receive Date: 20200528
  Receipt Date: 20200619
  Transmission Date: 20200714
  Serious: Yes (Death, Hospitalization, Other)
  Sender: FDA-Public Use
  Company Number: NVSC2020US146113

PATIENT
  Age: 59 Year
  Sex: Male
  Weight: 144.9 kg

DRUGS (1)
  1. ENTRESTO [Suspect]
     Active Substance: SACUBITRIL\VALSARTAN
     Indication: CARDIAC FAILURE
     Dosage: 0.5 DF, BID (HALF OF 24/26 MG)
     Route: 048
     Dates: start: 20200427, end: 20200513

REACTIONS (5)
  - Respiratory failure [Unknown]
  - Death [Fatal]
  - Hyperkalaemia [Unknown]
  - Septic shock [Unknown]
  - Renal impairment [Unknown]

NARRATIVE: CASE EVENT DATE: 20200523
